FAERS Safety Report 6140612-0 (Version None)
Quarter: 2009Q2

REPORT INFORMATION
  Report Type: 
  Country: None (occurrence: None)
  Receive Date: 20090402
  Receipt Date: 20090325
  Transmission Date: 20091009
  Serious: Yes (Other)
  Sender: FDA-Public Use
  Company Number: ES-JNJFOC-20090307148

PATIENT
  Age: 44 Year
  Sex: Female

DRUGS (6)
  1. INTELENCE [Suspect]
     Indication: HIV INFECTION
     Route: 048
  2. PREZISTA [Suspect]
     Indication: HIV INFECTION
     Route: 048
  3. TRUVADA [Suspect]
     Indication: HIV INFECTION
     Route: 065
  4. RITONAVIR [Concomitant]
     Indication: HIV INFECTION
  5. ZERIT [Concomitant]
     Indication: HIV INFECTION
  6. EPIVIR [Concomitant]
     Indication: HIV INFECTION

REACTIONS (2)
  - ANGIOEDEMA [None]
  - RASH [None]
